FAERS Safety Report 9206249 (Version 1)
Quarter: 2013Q2

REPORT INFORMATION
  Report Type: Spontaneous
  Country: US (occurrence: US)
  Receive Date: 20130403
  Receipt Date: 20130403
  Transmission Date: 20140414
  Serious: No
  Sender: FDA-Public Use
  Company Number: US-PFIZER INC-2013104293

PATIENT
  Age: 64 Year
  Sex: Female

DRUGS (5)
  1. XELJANZ [Suspect]
     Indication: RHEUMATOID ARTHRITIS
     Dosage: 5 MG, 2X/DAY
     Route: 048
     Dates: start: 201302
  2. PLAQUENIL [Concomitant]
     Dosage: 400 MG, (200 MG 2 TABS DAILY)
     Route: 048
  3. METHOTREXATE [Concomitant]
     Dosage: 2.5 MG, UNK
  4. SYNTHROID [Concomitant]
     Dosage: 125 UG, 1X/DAY
     Route: 048
  5. FOLIC ACID [Concomitant]
     Dosage: 1 MG, 1X/DAY
     Route: 048

REACTIONS (3)
  - Chills [Unknown]
  - Oropharyngeal pain [Unknown]
  - Pyrexia [Unknown]
